FAERS Safety Report 13589546 (Version 1)
Quarter: 2017Q2

REPORT INFORMATION
  Report Type: Spontaneous
  Country: FR (occurrence: FR)
  Receive Date: 20170529
  Receipt Date: 20170529
  Transmission Date: 20170830
  Serious: Yes (Death, Hospitalization, Other)
  Sender: FDA-Public Use
  Company Number: FR-ACCORD-051906

PATIENT
  Age: 71 Year
  Sex: Male

DRUGS (20)
  1. CISPLATINE ACCORD [Suspect]
     Active Substance: CISPLATIN
     Indication: NEUROENDOCRINE CARCINOMA
     Dosage: STRENGTH: 1 MG/ML?ONE SINGLE INTAKE
     Route: 042
     Dates: start: 20170411
  2. PANTOPRAZOLE [Concomitant]
     Active Substance: PANTOPRAZOLE
  3. MOVICOL [Concomitant]
     Active Substance: POLYETHYLENE GLYCOL 3350\POTASSIUM CHLORIDE\SODIUM BICARBONATE\SODIUM CHLORIDE
  4. DUROGESIC [Concomitant]
     Active Substance: FENTANYL
  5. EMEND [Concomitant]
     Active Substance: APREPITANT
     Dosage: ONE HOUR BEFORE THE CHEMOTHERAPY ADMINISTRATION
  6. SODIUM BICARBONATE. [Concomitant]
     Active Substance: SODIUM BICARBONATE
  7. GLYCERYL TRINITRATE [Concomitant]
     Active Substance: NITROGLYCERIN
  8. CRESTOR [Concomitant]
     Active Substance: ROSUVASTATIN CALCIUM
  9. INNOHEP [Concomitant]
     Active Substance: TINZAPARIN SODIUM
  10. PRIMPERAN [Concomitant]
     Active Substance: METOCLOPRAMIDE HYDROCHLORIDE
     Dosage: STRENGTH: 10 MG
  11. PREDNISOLONE. [Concomitant]
     Active Substance: PREDNISOLONE
     Dosage: STRENGTH: 20 MG??ON DAY TWO AND DAY THREE OF CHEMOTHERAPY IN THE MORNING
  12. IMODIUM [Concomitant]
     Active Substance: LOPERAMIDE HYDROCHLORIDE
     Dosage: STRENGTH: 2 MG
  13. PEGFILGRASTIM [Concomitant]
     Active Substance: PEGFILGRASTIM
     Dosage: STRENGTH:6 MG??AT DAY ONE
     Route: 058
  14. IRBESARTAN. [Concomitant]
     Active Substance: IRBESARTAN
  15. CARAFATE [Concomitant]
     Active Substance: SUCRALFATE
  16. ETOPOSIDE MYLAN [Suspect]
     Active Substance: ETOPOSIDE
     Indication: NEUROENDOCRINE CARCINOMA
     Dosage: ONE SINGLE INTAKE
     Route: 042
     Dates: start: 20170411
  17. PARACETAMOL [Concomitant]
     Active Substance: ACETAMINOPHEN
  18. SEVREDOL [Concomitant]
     Active Substance: MORPHINE
  19. HALDOL [Concomitant]
     Active Substance: HALOPERIDOL
     Dosage: STRENGTH: 2 MG/ML?THREE TIMES DAILY
     Dates: start: 20170419
  20. BISOPROLOL [Concomitant]
     Active Substance: BISOPROLOL

REACTIONS (9)
  - Klebsiella infection [Unknown]
  - Aplasia [Fatal]
  - Constipation [Unknown]
  - Septic shock [Unknown]
  - Abdominal pain [Unknown]
  - Neutropenia [Unknown]
  - Anaemia [Unknown]
  - Off label use [Unknown]
  - Acute kidney injury [Not Recovered/Not Resolved]

NARRATIVE: CASE EVENT DATE: 20170418
